FAERS Safety Report 20391756 (Version 2)
Quarter: 2022Q1

REPORT INFORMATION
  Report Type: Report from Study
  Country: US (occurrence: None)
  Receive Date: 20220128
  Receipt Date: 20220201
  Transmission Date: 20220423
  Serious: Yes (Hospitalization)
  Sender: FDA-Public Use
  Company Number: 2022A038679

PATIENT
  Sex: Female

DRUGS (1)
  1. FASENRA [Suspect]
     Active Substance: BENRALIZUMAB
     Route: 058

REACTIONS (6)
  - Gait disturbance [Unknown]
  - Anxiety [Unknown]
  - Wheezing [Unknown]
  - Chest discomfort [Unknown]
  - Condition aggravated [Unknown]
  - Product dose omission issue [Unknown]
